FAERS Safety Report 25283858 (Version 1)
Quarter: 2025Q2

REPORT INFORMATION
  Report Type: Spontaneous
  Country: US (occurrence: US)
  Receive Date: 20250508
  Receipt Date: 20250508
  Transmission Date: 20250716
  Serious: No
  Sender: BRISTOL-MYERS SQUIBB COMPANY
  Company Number: US-BRISTOL-MYERS SQUIBB COMPANY-2025-057998

PATIENT
  Age: 60 Year
  Sex: Female
  Weight: 84.37 kg

DRUGS (2)
  1. ORENCIA [Suspect]
     Active Substance: ABATACEPT
     Indication: Giant cell arteritis
     Route: 058
     Dates: start: 20250129
  2. ORENCIA [Suspect]
     Active Substance: ABATACEPT
     Route: 058
     Dates: start: 202503

REACTIONS (2)
  - Needle issue [Unknown]
  - Off label use [Unknown]
